FAERS Safety Report 6972345-2 (Version None)
Quarter: 2010Q3

REPORT INFORMATION
  Report Type: 
  Country: None (occurrence: None)
  Receive Date: 20100909
  Receipt Date: 20100831
  Transmission Date: 20110219
  Serious: Yes (Other)
  Sender: FDA-Public Use
  Company Number: US-JNJFOC-20100502398

PATIENT
  Sex: Female
  Weight: 57.3 kg

DRUGS (23)
  1. CISAPRIDE [Suspect]
     Indication: GASTROINTESTINAL MOTILITY DISORDER
     Route: 048
  2. CISAPRIDE [Suspect]
     Route: 048
  3. CISAPRIDE [Suspect]
     Indication: GASTROOESOPHAGEAL REFLUX DISEASE
     Route: 048
  4. CISAPRIDE [Suspect]
     Route: 048
  5. PREVACID [Concomitant]
     Indication: GASTROOESOPHAGEAL REFLUX DISEASE
     Route: 065
  6. PREVACID [Concomitant]
     Route: 065
  7. CELEBREX [Concomitant]
     Indication: OSTEOARTHRITIS
     Route: 065
  8. SALAGEN [Concomitant]
     Indication: SJOGREN'S SYNDROME
     Route: 065
  9. METOCLOPRAMIDE [Concomitant]
     Route: 065
  10. MULTI-VITAMINS [Concomitant]
     Indication: MEDICAL DIET
     Route: 065
  11. VITAMIN D [Concomitant]
     Indication: OSTEOPOROSIS
     Route: 048
  12. VITAMIN D [Concomitant]
     Route: 048
  13. VITAMIN D [Concomitant]
     Route: 048
  14. VITAMIN D [Concomitant]
     Indication: ANTIOXIDANT THERAPY
     Route: 048
  15. VITAMIN D [Concomitant]
     Route: 048
  16. VITAMIN D [Concomitant]
     Route: 048
  17. NASONEX [Concomitant]
     Indication: RHINITIS ALLERGIC
     Route: 065
  18. BONIVA [Concomitant]
     Indication: OSTEOPOROSIS
     Route: 042
  19. AVASTIN [Concomitant]
     Route: 065
  20. CALCIUM CARBONATE [Concomitant]
     Indication: MINERAL SUPPLEMENTATION
     Route: 065
  21. CALCIUM CARBONATE [Concomitant]
     Route: 065
  22. RECLAST [Concomitant]
     Route: 065
  23. ASPIRIN [Concomitant]
     Route: 065

REACTIONS (1)
  - ELECTROCARDIOGRAM QT PROLONGED [None]
